FAERS Safety Report 4510608-0 (Version None)
Quarter: 2004Q4

REPORT INFORMATION
  Report Type: 
  Country: None (occurrence: None)
  Receive Date: 20041124
  Receipt Date: 20041118
  Transmission Date: 20050328
  Serious: Yes (Death)
  Sender: FDA-Public Use
  Company Number: GB-ABBOTT-04P-167-0281088-00

PATIENT
  Age: 43 Year
  Sex: Female

DRUGS (5)
  1. EPILIM CHRONO TABLETS [Suspect]
     Indication: EPILEPSY
  2. QUETIAPINE [Suspect]
     Indication: PSYCHOTIC DISORDER
     Route: 048
  3. QUETIAPINE [Suspect]
     Route: 048
  4. CARBAMAZEPINE [Concomitant]
     Indication: EPILEPSY
     Route: 065
  5. LEVETIRACETAM [Concomitant]
     Indication: EPILEPSY
     Route: 048
     Dates: start: 20030701

REACTIONS (2)
  - PULMONARY HAEMORRHAGE [None]
  - SUDDEN DEATH [None]
